FAERS Safety Report 6732504-0 (Version None)
Quarter: 2010Q2

REPORT INFORMATION
  Report Type: 
  Country: None (occurrence: None)
  Receive Date: 20100519
  Receipt Date: 20100510
  Transmission Date: 20101027
  Serious: Yes (Hospitalization, Other)
  Sender: FDA-Public Use
  Company Number: US-ELI_LILLY_AND_COMPANY-US201005002205

PATIENT
  Sex: Female
  Weight: 76.644 kg

DRUGS (15)
  1. BYETTA [Suspect]
     Indication: TYPE 2 DIABETES MELLITUS
     Dosage: 5 UG, 2/D
     Route: 058
  2. BYETTA [Suspect]
     Dosage: 10 UG, 2/D
     Route: 058
     Dates: end: 20080601
  3. BYETTA [Suspect]
     Dosage: 5 UG, UNK
     Route: 058
  4. NOVOLOG [Concomitant]
     Indication: TYPE 2 DIABETES MELLITUS
     Dates: end: 20100301
  5. ACTOS /SCH/ [Concomitant]
     Indication: TYPE 2 DIABETES MELLITUS
  6. METFORMIN HYDROCHLORIDE [Concomitant]
     Indication: TYPE 2 DIABETES MELLITUS
  7. GLYBURIDE AND METFORMIN HCL [Concomitant]
  8. HUMULIN N [Concomitant]
     Dosage: 30 U, EACH EVENING
  9. PLAVIX [Concomitant]
     Dosage: 75 MG, DAILY (1/D)
  10. ATENOLOL [Concomitant]
     Dosage: 25 MG, DAILY (1/D)
  11. FISH OIL [Concomitant]
     Dosage: UNK, DAILY (1/D)
  12. SIMVASTATIN [Concomitant]
  13. COENZYME Q10 [Concomitant]
     Dosage: UNK, DAILY (1/D)
  14. VITAMIN D [Concomitant]
     Dosage: 1.25 MG, OTHER
  15. AMITIZA [Concomitant]
     Dosage: 24 MG, 2/D

REACTIONS (12)
  - BITE [None]
  - BLOOD GLUCOSE DECREASED [None]
  - BLOOD GLUCOSE INCREASED [None]
  - CHILLS [None]
  - GASTROINTESTINAL INFECTION [None]
  - HYPOTENSION [None]
  - NAUSEA [None]
  - OFF LABEL USE [None]
  - PYREXIA [None]
  - SKIN DISCOLOURATION [None]
  - VOMITING [None]
  - WEIGHT DECREASED [None]
